FAERS Safety Report 5857676-1 (Version None)
Quarter: 2008Q3

REPORT INFORMATION
  Report Type: 
  Country: None (occurrence: None)
  Receive Date: 20080822
  Receipt Date: 20080812
  Transmission Date: 20090109
  Serious: Yes (Hospitalization, Other)
  Sender: FDA-Public Use
  Company Number: 2008AP001966

PATIENT
  Age: 57 Year
  Sex: Male

DRUGS (1)
  1. TERBINAFINE HCL [Suspect]
     Indication: ONYCHOMYCOSIS
     Dosage: 250 MG;QD;  PO
     Route: 048

REACTIONS (15)
  - ALPHA 1 FOETOPROTEIN INCREASED [None]
  - ANOREXIA [None]
  - ASCITES [None]
  - AUTOIMMUNE HEPATITIS [None]
  - CHOLESTASIS [None]
  - CONFUSIONAL STATE [None]
  - FATIGUE [None]
  - HAEMOCHROMATOSIS [None]
  - HEPATIC CIRRHOSIS [None]
  - HEPATIC CYST [None]
  - HEPATIC NECROSIS [None]
  - INFLUENZA LIKE ILLNESS [None]
  - INTERNATIONAL NORMALISED RATIO INCREASED [None]
  - MALAISE [None]
  - PORTAL HYPERTENSION [None]
